FAERS Safety Report 26027873 (Version 1)
Quarter: 2025Q4

REPORT INFORMATION
  Report Type: Report from Study
  Country: US (occurrence: US)
  Receive Date: 20251111
  Receipt Date: 20251111
  Transmission Date: 20260118
  Serious: Yes (Death, Other)
  Sender: ACADIA PHARMACEUTICALS
  Company Number: US-ACADIA PHARMACEUTICALS INC.-ACA-2025-PIM-011846

PATIENT
  Age: 91 Year
  Sex: Male

DRUGS (10)
  1. NUPLAZID [Suspect]
     Active Substance: PIMAVANSERIN TARTRATE
     Indication: Parkinson^s disease
     Dosage: 34 MILLIGRAM, QD
     Route: 048
     Dates: start: 20250121, end: 20251024
  2. CAPTOPRIL [Concomitant]
     Active Substance: CAPTOPRIL
  3. GABAPENTIN [Concomitant]
     Active Substance: GABAPENTIN
  4. TIZANIDINE [Concomitant]
     Active Substance: TIZANIDINE
  5. QUETIAPINE [Concomitant]
     Active Substance: QUETIAPINE
  6. PRAZOSIN [Concomitant]
     Active Substance: PRAZOSIN
  7. FINASTERIDE [Concomitant]
     Active Substance: FINASTERIDE
  8. METOPROLOL [Concomitant]
     Active Substance: METOPROLOL
  9. CARBIDOPA\LEVODOPA [Concomitant]
     Active Substance: CARBIDOPA\LEVODOPA
  10. MEMANTINE [Concomitant]
     Active Substance: MEMANTINE

REACTIONS (2)
  - Abscess intestinal [Fatal]
  - Intestinal perforation [Fatal]

NARRATIVE: CASE EVENT DATE: 20251024
